FAERS Safety Report 20495502 (Version 1)
Quarter: 2022Q1

REPORT INFORMATION
  Report Type: Spontaneous
  Country: US (occurrence: US)
  Receive Date: 20220221
  Receipt Date: 20220221
  Transmission Date: 20220423
  Serious: Yes (Hospitalization)
  Sender: FDA-Public Use
  Company Number: US-ALVOGEN-2022-ALVOGEN-118339

PATIENT
  Age: 38 Year
  Sex: Female

DRUGS (6)
  1. GABAPENTIN [Suspect]
     Active Substance: GABAPENTIN
     Indication: Product used for unknown indication
     Dosage: TWICE DAILY
     Route: 048
  2. FENTANYL [Suspect]
     Active Substance: FENTANYL
     Indication: Product used for unknown indication
  3. CLONAZEPAM [Suspect]
     Active Substance: CLONAZEPAM
     Indication: Product used for unknown indication
     Dosage: 5-10 MG
     Route: 048
  4. 4-AMINO-3-PHENYLBUTYRIC ACID [Concomitant]
     Active Substance: 4-AMINO-3-PHENYLBUTYRIC ACID
     Indication: Anxiety
     Dosage: SEVERAL TEASPOONS
  5. DIPHENHYDRAMINE [Concomitant]
     Active Substance: DIPHENHYDRAMINE
     Indication: Product used for unknown indication
  6. 4-AMINO-3-PHENYLBUTYRIC ACID [Concomitant]
     Active Substance: 4-AMINO-3-PHENYLBUTYRIC ACID
     Indication: Withdrawal syndrome
     Dosage: SEVERAL TEASPOONS

REACTIONS (2)
  - Withdrawal syndrome [Unknown]
  - Substance use disorder [Unknown]
